FAERS Safety Report 8254600 (Version 3)
Quarter: 2012Q4

REPORT INFORMATION
  Report Type: 
  Country: DE (occurrence: DE)
  Receive Date: 20111118
  Receipt Date: 20121001
  Transmission Date: 20130627
  Serious: Yes (Other)
  Sender: FDA-Public Use
  Company Number: DE-UCBSA-045573

PATIENT
  Age: 76 Year
  Sex: Male
  Weight: 60 kg

DRUGS (4)
  1. KEPPRA [Suspect]
  2. KEPPRA [Interacting]
     Route: 048
     Dates: start: 20110922
  3. BLOPRESS [Interacting]
     Dosage: 8 MG
  4. KRYON [Concomitant]
     Dosage: UNKNOWN DOASAGE

REACTIONS (14)
  - Pancreatitis chronic [Not Recovered/Not Resolved]
  - Renal impairment [Not Recovered/Not Resolved]
  - Grand mal convulsion [Unknown]
  - Eye disorder [Unknown]
  - Blood sodium decreased [Not Recovered/Not Resolved]
  - Nail discolouration [Unknown]
  - Paraesthesia [Unknown]
  - Drug interaction [Unknown]
  - Increased upper airway secretion [Unknown]
  - Vision blurred [Unknown]
  - Migraine [Unknown]
  - Vomiting [Unknown]
  - Diarrhoea [Unknown]
  - Electrolyte depletion [Unknown]
